FAERS Safety Report 18963200 (Version 1)
Quarter: 2021Q1

REPORT INFORMATION
  Report Type: Report from Study
  Country: CA (occurrence: CA)
  Receive Date: 20210303
  Receipt Date: 20210303
  Transmission Date: 20210420
  Serious: Yes (Other)
  Sender: FDA-Public Use
  Company Number: CA-HLS-202106867

PATIENT
  Age: 59 Year
  Sex: Male

DRUGS (14)
  1. METFORMIN [Concomitant]
     Active Substance: METFORMIN HYDROCHLORIDE
     Dosage: 500MG AT SUPPER
     Route: 065
  2. SPIRIVA [Concomitant]
     Active Substance: TIOTROPIUM BROMIDE MONOHYDRATE
     Dosage: 18MCG DAILY
     Route: 065
  3. CLOZARIL [Suspect]
     Active Substance: CLOZAPINE
     Indication: SCHIZOPHRENIA
     Dosage: 275MG QHS
     Route: 048
     Dates: start: 20160921
  4. AMLODIPINE [Concomitant]
     Active Substance: AMLODIPINE BESYLATE
     Dosage: 10MG DAILY
     Route: 048
  5. TAMSULOSIN [Concomitant]
     Active Substance: TAMSULOSIN
     Dosage: 0.8MG QHS
     Route: 065
  6. EPIVAL [Concomitant]
     Active Substance: DIVALPROEX SODIUM
     Dosage: 125MG QAM + 500MG QLUNCH + 500MG QHS
     Route: 048
  7. TRAZODONE [Concomitant]
     Active Substance: TRAZODONE HYDROCHLORIDE
     Dosage: 100MG QHS
     Route: 065
  8. SENOKOT [Concomitant]
     Active Substance: SENNOSIDES
     Route: 065
  9. RISPERIDONE. [Concomitant]
     Active Substance: RISPERIDONE
     Dosage: 0.5MG QHS
     Route: 065
  10. CLONAZEPAM. [Concomitant]
     Active Substance: CLONAZEPAM
     Dosage: 0.5MG DAILY
     Route: 048
  11. RABEPRAZOLE [Concomitant]
     Active Substance: RABEPRAZOLE
     Dosage: 20MG DAILY
     Route: 065
  12. VENTOLIN [Concomitant]
     Active Substance: ALBUTEROL SULFATE
     Dosage: UNKNOWN
     Route: 065
  13. LACTULOSE. [Concomitant]
     Active Substance: LACTULOSE
     Dosage: UNKNOWN
     Route: 065
  14. PEG [Concomitant]
     Active Substance: POLYETHYLENE GLYCOLS
     Dosage: UNKNOWN
     Route: 065

REACTIONS (1)
  - Coronavirus infection [Unknown]

NARRATIVE: CASE EVENT DATE: 20210106
